FAERS Safety Report 8822300 (Version 2)
Quarter: 2013Q1

REPORT INFORMATION
  Report Type: Spontaneous
  Country: US (occurrence: US)
  Receive Date: 20121003
  Receipt Date: 20130205
  Transmission Date: 20140127
  Serious: Yes (Hospitalization)
  Sender: FDA-Public Use
  Company Number: US-BAYER-2012-100933

PATIENT
  Age: 43 Year
  Sex: Female

DRUGS (7)
  1. YASMIN [Suspect]
  2. LIPITOR [Concomitant]
  3. METFORMIN [Concomitant]
  4. ACIPHEX [Concomitant]
  5. ROBINUL [Concomitant]
  6. LOPRESSOR [Concomitant]
     Indication: HEART RATE INCREASED
  7. INSULIN [Concomitant]

REACTIONS (2)
  - Pulmonary embolism [None]
  - Deep vein thrombosis [None]
